FAERS Safety Report 23538298 (Version 2)
Quarter: 2024Q1

REPORT INFORMATION
  Report Type: Spontaneous
  Country: US (occurrence: US)
  Receive Date: 20240219
  Receipt Date: 20240229
  Transmission Date: 20240410
  Serious: Yes (Hospitalization, Other)
  Sender: FDA-Public Use
  Company Number: US-ELI_LILLY_AND_COMPANY-US202402003561

PATIENT
  Age: 57 Year
  Sex: Female

DRUGS (8)
  1. HUMULIN R U-500 [Suspect]
     Active Substance: INSULIN HUMAN
     Indication: Type 2 diabetes mellitus
     Dosage: UNK UNK, UNKNOWN
     Route: 058
  2. HUMULIN R U-500 [Suspect]
     Active Substance: INSULIN HUMAN
     Indication: Type 2 diabetes mellitus
     Dosage: UNK UNK, UNKNOWN
     Route: 058
  3. HUMULIN R U-500 [Suspect]
     Active Substance: INSULIN HUMAN
     Dosage: 150 INTERNATIONAL UNIT, UNKNOWN
     Route: 058
  4. HUMULIN R U-500 [Suspect]
     Active Substance: INSULIN HUMAN
     Dosage: 150 INTERNATIONAL UNIT, UNKNOWN
     Route: 058
  5. HUMULIN R U-500 [Suspect]
     Active Substance: INSULIN HUMAN
     Dosage: 350 U, DAILY
     Route: 058
  6. HUMULIN R U-500 [Suspect]
     Active Substance: INSULIN HUMAN
     Dosage: 350 U, DAILY
     Route: 058
  7. HUMULIN R U-500 [Suspect]
     Active Substance: INSULIN HUMAN
     Dosage: 350 U, DAILY
     Route: 058
  8. HUMULIN R U-500 [Suspect]
     Active Substance: INSULIN HUMAN
     Dosage: 350 U, DAILY
     Route: 058

REACTIONS (10)
  - Diabetic ketoacidosis [Unknown]
  - Infection [Unknown]
  - Fall [Unknown]
  - Vision blurred [Unknown]
  - Malaise [Unknown]
  - Blood glucose increased [Unknown]
  - Drug ineffective [Unknown]
  - Blood glucose increased [Recovered/Resolved]
  - Drug ineffective [Unknown]
  - Fungal infection [Unknown]

NARRATIVE: CASE EVENT DATE: 20230101
